FAERS Safety Report 7179896-9 (Version None)
Quarter: 2010Q4

REPORT INFORMATION
  Report Type: 
  Country: None (occurrence: None)
  Receive Date: 20101208
  Receipt Date: 20101124
  Transmission Date: 20110411
  Serious: Yes (Hospitalization)
  Sender: FDA-Public Use
  Company Number: JPI-P-013092

PATIENT
  Age: 33 Year
  Sex: Female
  Weight: 124.7392 kg

DRUGS (5)
  1. XYREM [Suspect]
     Indication: CATAPLEXY
     Dosage: 3 GM (1.5 GM,2 IN 1 D),ORAL ; (TITRATING DOSE),ORAL ; 7.5 GM (3.75 GM,2 IN 1 D),ORAL
     Route: 048
     Dates: start: 20080516
  2. METOPROLOL [Concomitant]
  3. PROGESTERONE [Concomitant]
  4. THYROID [Concomitant]
  5. VENLAFAXINE HYDROCHLORIDE [Concomitant]

REACTIONS (3)
  - AMNESIA [None]
  - GAIT DISTURBANCE [None]
  - IMPAIRED GASTRIC EMPTYING [None]
